FAERS Safety Report 20378588 (Version 3)
Quarter: 2022Q1

REPORT INFORMATION
  Report Type: Spontaneous
  Country: GB (occurrence: GB)
  Receive Date: 20220126
  Receipt Date: 20220201
  Transmission Date: 20220423
  Serious: Yes (Death, Other)
  Sender: FDA-Public Use
  Company Number: GB-009507513-2201GBR003616

PATIENT
  Age: 81 Year
  Sex: Female

DRUGS (2)
  1. PEMBROLIZUMAB [Suspect]
     Active Substance: PEMBROLIZUMAB
     Indication: Small intestine carcinoma metastatic
     Dosage: 400 MG, EVERY 6 WEEKS
  2. PFIZER-BIONTECH COVID-19 VACCINE [Suspect]
     Active Substance: TOZINAMERAN
     Indication: Prophylaxis
     Dosage: UNK
     Dates: start: 202110

REACTIONS (10)
  - Death [Fatal]
  - Hepatotoxicity [Unknown]
  - Respiratory failure [Unknown]
  - Myocarditis [Unknown]
  - Pneumonia [Unknown]
  - Blood creatinine increased [Recovering/Resolving]
  - Myositis [Unknown]
  - Fatigue [Unknown]
  - Myalgia [Unknown]
  - Colitis [Unknown]
